FAERS Safety Report 6071451-7 (Version None)
Quarter: 2009Q1

REPORT INFORMATION
  Report Type: 
  Country: None (occurrence: None)
  Receive Date: 20090205
  Receipt Date: 20090121
  Transmission Date: 20090719
  Serious: Yes (Death, Other)
  Sender: FDA-Public Use
  Company Number: A-US2007-16130

PATIENT
  Age: 73 Year
  Sex: Female

DRUGS (2)
  1. TRACLEER [Suspect]
     Indication: PULMONARY HYPERTENSION
     Dosage: ORAL; 62 MG, BID, ORAL
     Route: 048
     Dates: start: 20070529, end: 20070607
  2. TRACLEER [Suspect]
     Indication: PULMONARY HYPERTENSION
     Dosage: ORAL; 62 MG, BID, ORAL
     Route: 048
     Dates: start: 20060314

REACTIONS (5)
  - ALANINE AMINOTRANSFERASE INCREASED [None]
  - ASPARTATE AMINOTRANSFERASE INCREASED [None]
  - BLOOD ALKALINE PHOSPHATASE INCREASED [None]
  - BLOOD BILIRUBIN INCREASED [None]
  - LIVER FUNCTION TEST ABNORMAL [None]
